FAERS Safety Report 12203338 (Version 4)
Quarter: 2016Q2

REPORT INFORMATION
  Report Type: Report from Study
  Country: CA (occurrence: CA)
  Receive Date: 20160323
  Receipt Date: 20160605
  Transmission Date: 20160815
  Serious: Yes (Hospitalization)
  Sender: FDA-Public Use
  Company Number: CA-ROCHE-1220807

PATIENT
  Age: 63 Year
  Sex: Male
  Weight: 82 kg

DRUGS (17)
  1. DIPHENHYDRAMINE HCL [Concomitant]
     Active Substance: DIPHENHYDRAMINE HYDROCHLORIDE
     Route: 048
     Dates: start: 20110321
  2. ACETAMINOPHEN. [Concomitant]
     Active Substance: ACETAMINOPHEN
     Route: 048
     Dates: start: 20110321, end: 20120110
  3. LIPITOR [Concomitant]
     Active Substance: ATORVASTATIN CALCIUM
  4. METHYLPREDNISOLONE. [Concomitant]
     Active Substance: METHYLPREDNISOLONE
     Route: 042
     Dates: start: 20110321
  5. ARAVA [Concomitant]
     Active Substance: LEFLUNOMIDE
  6. DILTIAZEM [Concomitant]
     Active Substance: DILTIAZEM
  7. ACTEMRA [Suspect]
     Active Substance: TOCILIZUMAB
     Indication: RHEUMATOID ARTHRITIS
     Route: 042
     Dates: start: 20100824, end: 20101111
  8. ACETAMINOPHEN. [Concomitant]
     Active Substance: ACETAMINOPHEN
     Route: 048
     Dates: start: 20120110
  9. FOLIC ACID. [Concomitant]
     Active Substance: FOLIC ACID
  10. PANTOLOC [Concomitant]
     Active Substance: PANTOPRAZOLE SODIUM
  11. PLAQUENIL [Concomitant]
     Active Substance: HYDROXYCHLOROQUINE SULFATE
  12. RITUXAN [Suspect]
     Active Substance: RITUXIMAB
     Indication: RHEUMATOID ARTHRITIS
     Route: 042
     Dates: start: 20110321
  13. RITUXAN [Suspect]
     Active Substance: RITUXIMAB
     Route: 042
     Dates: start: 20150112
  14. COVERSYL [Concomitant]
     Active Substance: PERINDOPRIL
  15. SULFASALAZINE. [Concomitant]
     Active Substance: SULFASALAZINE
  16. ACTONEL [Concomitant]
     Active Substance: RISEDRONATE SODIUM
  17. PREDNISONE. [Concomitant]
     Active Substance: PREDNISONE

REACTIONS (17)
  - Hypertension [Unknown]
  - Chest X-ray abnormal [Not Recovered/Not Resolved]
  - Infusion related reaction [Unknown]
  - Drug dose omission [Unknown]
  - Palpitations [Not Recovered/Not Resolved]
  - Hypertension [Unknown]
  - Heart rate decreased [Unknown]
  - Blood pressure fluctuation [Unknown]
  - Nasopharyngitis [Unknown]
  - Blood pressure increased [Unknown]
  - Diarrhoea [Recovered/Resolved]
  - Heart rate decreased [Unknown]
  - Arterial occlusive disease [Unknown]
  - Weight increased [Not Recovered/Not Resolved]
  - Malaise [Unknown]
  - Vomiting [Recovered/Resolved]
  - Nausea [Recovered/Resolved]

NARRATIVE: CASE EVENT DATE: 2013
